FAERS Safety Report 8877736 (Version 2)
Quarter: 2012Q4

REPORT INFORMATION
  Report Type: Spontaneous
  Country: JP (occurrence: None)
  Receive Date: 20121026
  Receipt Date: 20121116
  Transmission Date: 20130627
  Serious: Yes (Death, Other)
  Sender: FDA-Public Use
  Company Number: JP-CLINIGEN HEALTHCARE LIMITED-003005

PATIENT
  Age: 75 Year
  Sex: Male

DRUGS (6)
  1. FOSCARNET SODIUM [Suspect]
  2. CYCLOSPORINE [Suspect]
     Indication: BONE MARROW FAILURE
  3. ANTITHYMOCYTE IMMUNOGLOBULIN [Concomitant]
     Indication: BONE MARROW FAILURE
     Dosage: 5 days
  4. METHYLPREDNISOLONE [Suspect]
     Indication: DRUG ALLERGY
     Dosage: 5 days
  5. PREDNISOLONE (PREDNISOLONE) [Suspect]
     Indication: PROPHYLAXIS
     Dosage: 5 days
  6. G-CSF [Concomitant]

REACTIONS (9)
  - Hepatomegaly [None]
  - Hepatic function abnormal [None]
  - Post transplant lymphoproliferative disorder [None]
  - Multi-organ failure [None]
  - Cytomegalovirus test positive [None]
  - Altered state of consciousness [None]
  - Encephalitis viral [None]
  - Respiratory failure [None]
  - Lactic acidosis [None]
